FAERS Safety Report 14305900 (Version 5)
Quarter: 2018Q1

REPORT INFORMATION
  Report Type: Spontaneous
  Country: US (occurrence: US)
  Receive Date: 20171219
  Receipt Date: 20180315
  Transmission Date: 20180509
  Serious: Yes (Death, Hospitalization, Other)
  Sender: FDA-Public Use
  Company Number: US-ACTELION-A-NJ2017-164249

PATIENT
  Age: 71 Year
  Sex: Male

DRUGS (3)
  1. SILDENAFIL. [Concomitant]
     Active Substance: SILDENAFIL
  2. BREO ELLIPTA [Concomitant]
     Active Substance: FLUTICASONE FUROATE\VILANTEROL TRIFENATATE
  3. TRACLEER [Suspect]
     Active Substance: BOSENTAN
     Indication: PULMONARY ARTERIAL HYPERTENSION
     Dosage: 125 MG, BID
     Route: 048
     Dates: start: 20070403

REACTIONS (9)
  - Lung neoplasm malignant [Fatal]
  - Chest pain [Unknown]
  - Chronic obstructive pulmonary disease [Unknown]
  - Pneumonia [Fatal]
  - Squamous cell carcinoma [Unknown]
  - Dyspnoea [Unknown]
  - Renal failure [Fatal]
  - Pneumothorax [Not Recovered/Not Resolved]
  - Lung abscess [Unknown]

NARRATIVE: CASE EVENT DATE: 20171201
